FAERS Safety Report 25752007 (Version 1)
Quarter: 2025Q3

REPORT INFORMATION
  Report Type: Spontaneous
  Country: US (occurrence: None)
  Receive Date: 20250902
  Receipt Date: 20250902
  Transmission Date: 20251021
  Serious: No
  Sender: FDA-CTU
  Company Number: None

PATIENT

DRUGS (4)
  1. BIMATOPROST [Suspect]
     Active Substance: BIMATOPROST
  2. LATANOPROST [Concomitant]
     Active Substance: LATANOPROST
  3. BRIMONIDINE [Concomitant]
     Active Substance: BRIMONIDINE TARTRATE
  4. TRAVOPROST [Concomitant]
     Active Substance: TRAVOPROST

REACTIONS (4)
  - Drug ineffective [None]
  - Eye irritation [None]
  - Ocular hyperaemia [None]
  - Vision blurred [None]

NARRATIVE: CASE EVENT DATE: 20250829
